FAERS Safety Report 7064618-2 (Version None)
Quarter: 2010Q4

REPORT INFORMATION
  Report Type: 
  Country: None (occurrence: None)
  Receive Date: 20101022
  Receipt Date: 20101022
  Transmission Date: 20110411
  Serious: No
  Sender: FDA-Public Use
  Company Number: None

PATIENT
  Age: 67 Year
  Sex: Female
  Weight: 58.9676 kg

DRUGS (4)
  1. PROCRIT [Suspect]
     Indication: ANAEMIA
     Dosage: SEE IMAGE
     Dates: start: 19970101, end: 20100101
  2. PROCRIT [Suspect]
  3. PROCRIT [Suspect]
     Dosage: 4,000 UNITS
  4. PROCRIT [Suspect]

REACTIONS (11)
  - BACK PAIN [None]
  - BRONCHITIS [None]
  - DRUG DOSE OMISSION [None]
  - HEADACHE [None]
  - INJECTION SITE PAIN [None]
  - MALAISE [None]
  - MYALGIA [None]
  - OEDEMA PERIPHERAL [None]
  - PAIN [None]
  - PRODUCT QUALITY ISSUE [None]
  - VISION BLURRED [None]
